FAERS Safety Report 25379684 (Version 2)
Quarter: 2025Q2

REPORT INFORMATION
  Report Type: Spontaneous
  Country: FR (occurrence: FR)
  Receive Date: 20250530
  Receipt Date: 20250609
  Transmission Date: 20250717
  Serious: Yes (Death, Other)
  Sender: SHIONOGI
  Company Number: FR-shionogi-202500005514

PATIENT
  Age: 50 Year
  Sex: Male

DRUGS (9)
  1. CEFIDEROCOL SULFATE TOSYLATE [Suspect]
     Active Substance: CEFIDEROCOL SULFATE TOSYLATE
     Indication: Septic shock
     Route: 042
     Dates: start: 20250515, end: 20250520
  2. CEFIDEROCOL SULFATE TOSYLATE [Suspect]
     Active Substance: CEFIDEROCOL SULFATE TOSYLATE
     Indication: Escherichia infection
  3. PHOCYTAN [Concomitant]
     Active Substance: .ALPHA.-GLUCOSE-1-PHOSPHATE DISODIUM TETRAHYDRATE
     Indication: Product used for unknown indication
  4. SUFENTA [Concomitant]
     Active Substance: SUFENTANIL CITRATE
     Indication: Product used for unknown indication
  5. MIDAZOLAM [Concomitant]
     Active Substance: MIDAZOLAM
     Indication: Product used for unknown indication
  6. NOREPINEPHRINE BITARTRATE [Concomitant]
     Active Substance: NOREPINEPHRINE BITARTRATE
     Indication: Product used for unknown indication
     Route: 042
  7. LOVENOX [Concomitant]
     Active Substance: ENOXAPARIN SODIUM
     Indication: Product used for unknown indication
     Route: 058
  8. ESOMEPRAZOLE [Concomitant]
     Active Substance: ESOMEPRAZOLE
     Indication: Product used for unknown indication
     Route: 042
  9. INSULIN NOS [Concomitant]
     Active Substance: INSULIN NOS
     Indication: Product used for unknown indication
     Route: 042

REACTIONS (1)
  - Multiple organ dysfunction syndrome [Fatal]

NARRATIVE: CASE EVENT DATE: 20250520
